FAERS Safety Report 7021245-0 (Version None)
Quarter: 2010Q3

REPORT INFORMATION
  Report Type: 
  Country: None (occurrence: None)
  Receive Date: 20100929
  Receipt Date: 20100922
  Transmission Date: 20110219
  Serious: Yes (Other)
  Sender: FDA-Public Use
  Company Number: JP-PFIZER INC-2010120087

PATIENT
  Age: 34 Year
  Sex: Female

DRUGS (9)
  1. MEDROL [Suspect]
     Dosage: 6 MG/4 MG IN ALTERNATE DAY
     Route: 048
  2. ONE-ALPHA [Concomitant]
     Dosage: UNK
  3. FUROSEMIDE [Concomitant]
     Dosage: UNK
  4. OMEPRAL [Concomitant]
     Dosage: UNK
  5. PERSANTIN [Concomitant]
     Dosage: UNK
  6. MUCOSTA [Concomitant]
     Dosage: UNK
  7. ADETPHOS [Concomitant]
     Dosage: UNK
  8. MECOBALAMIN [Concomitant]
     Dosage: UNK
  9. ALENDRONATE SODIUM [Concomitant]
     Dosage: UNK

REACTIONS (1)
  - GOUTY TOPHUS [None]
